FAERS Safety Report 8972391 (Version 2)
Quarter: 2013Q1

REPORT INFORMATION
  Report Type: Spontaneous
  Country: SG (occurrence: SG)
  Receive Date: 20121219
  Receipt Date: 20130107
  Transmission Date: 20140127
  Serious: Yes (Death, Hospitalization)
  Sender: FDA-Public Use
  Company Number: SG-SANOFI-AVENTIS-2012SA090062

PATIENT
  Age: 49 Year
  Sex: Male
  Weight: 55.5 kg

DRUGS (1)
  1. TAXOTERE [Suspect]
     Indication: NON-SMALL CELL LUNG CANCER
     Dosage: RECEIVED EVERY 21 DAYS
     Route: 042
     Dates: start: 20120816

REACTIONS (4)
  - Pneumonitis [Fatal]
  - Dyspnoea [Fatal]
  - Lethargy [Fatal]
  - Respiratory failure [Fatal]
